FAERS Safety Report 7366990-2 (Version None)
Quarter: 2011Q1

REPORT INFORMATION
  Report Type: 
  Country: None (occurrence: None)
  Receive Date: 20110317
  Receipt Date: 20110317
  Transmission Date: 20110831
  Serious: Yes (Other)
  Sender: FDA-Public Use
  Company Number: None

PATIENT
  Age: 4 Year
  Weight: 19.5047 kg

DRUGS (3)
  1. MUCINEX [Suspect]
     Indication: NASAL CONGESTION
     Dosage: 5ML 4 HOURS PO
     Route: 048
     Dates: start: 20110313, end: 20110315
  2. MUCINEX [Suspect]
     Indication: COUGH
     Dosage: 5ML 4 HOURS PO
     Route: 048
     Dates: start: 20110313, end: 20110315
  3. MUCINEX [Suspect]
     Indication: INCREASED UPPER AIRWAY SECRETION
     Dosage: 5ML 4 HOURS PO
     Route: 048
     Dates: start: 20110313, end: 20110315

REACTIONS (3)
  - AGGRESSION [None]
  - SCREAMING [None]
  - ABNORMAL BEHAVIOUR [None]
